FAERS Safety Report 17568287 (Version 1)
Quarter: 2020Q1

REPORT INFORMATION
  Report Type: Spontaneous
  Country: US (occurrence: US)
  Receive Date: 20200320
  Receipt Date: 20200320
  Transmission Date: 20200409
  Serious: Yes (Death, Disabling, Other)
  Sender: FDA-Public Use
  Company Number: US-SA-2020SA072007

PATIENT
  Sex: Male

DRUGS (1)
  1. GOLD BOND ORIGINAL STRENGTH POWDER [Suspect]
     Active Substance: MENTHOL\ZINC OXIDE

REACTIONS (11)
  - Loss of personal independence in daily activities [Unknown]
  - Acute respiratory failure [Fatal]
  - Hypoglycaemia [Fatal]
  - Septic shock [Fatal]
  - Hypoalbuminaemia [Fatal]
  - Nodal arrhythmia [Fatal]
  - Occupational exposure to product [Fatal]
  - Pain [Unknown]
  - Mesothelioma malignant [Fatal]
  - Emotional distress [Unknown]
  - Acute kidney injury [Fatal]
